FAERS Safety Report 7236854-3 (Version None)
Quarter: 2011Q1

REPORT INFORMATION
  Report Type: 
  Country: None (occurrence: None)
  Receive Date: 20110120
  Receipt Date: 20110113
  Transmission Date: 20110831
  Serious: Yes (Hospitalization)
  Sender: FDA-Public Use
  Company Number: US-US-EMD SERONO, INC.-234239J09USA

PATIENT
  Sex: Female
  Weight: 62 kg

DRUGS (8)
  1. UNSPECIFIED MEDICATION [Concomitant]
     Indication: UTERINE LEIOMYOMA
  2. BACLOFEN [Concomitant]
     Indication: MUSCLE SPASTICITY
  3. LORTAB [Concomitant]
     Indication: PAIN
  4. FLEXERIL [Concomitant]
     Indication: MULTIPLE SCLEROSIS
  5. FLEXERIL [Concomitant]
     Indication: MUSCLE SPASMS
     Route: 048
     Dates: start: 20090409
  6. LORTAB [Concomitant]
     Indication: HEADACHE
     Route: 048
     Dates: start: 20090409
  7. BACLOFEN [Concomitant]
     Indication: MUSCLE SPASMS
     Route: 048
     Dates: start: 20090309
  8. REBIF [Suspect]
     Indication: MULTIPLE SCLEROSIS
     Route: 058
     Dates: start: 20080820, end: 20091201

REACTIONS (7)
  - VAGINAL HAEMORRHAGE [None]
  - NEPHROLITHIASIS [None]
  - ASTHENIA [None]
  - KIDNEY INFECTION [None]
  - ANAEMIA [None]
  - LOSS OF CONSCIOUSNESS [None]
  - VITAMIN B12 DEFICIENCY [None]
